FAERS Safety Report 18647782 (Version 1)
Quarter: 2020Q4

REPORT INFORMATION
  Report Type: Spontaneous
  Country: US (occurrence: US)
  Receive Date: 20201221
  Receipt Date: 20201221
  Transmission Date: 20210114
  Serious: Yes (Hospitalization)
  Sender: FDA-Public Use
  Company Number: None

PATIENT
  Age: 72 Year
  Sex: Female
  Weight: 53.2 kg

DRUGS (7)
  1. FLUOXETINE 80 MG DAILY [Concomitant]
  2. ATORVASTATIN 10 MG DAILY [Concomitant]
  3. GABAPENTIN 300 MG BID [Concomitant]
  4. CLONAZEPAM 0.5 MG BID [Concomitant]
  5. LISINOPRIL 10 MG DAILY [Concomitant]
  6. BAMLANIVIMAB. [Suspect]
     Active Substance: BAMLANIVIMAB
     Indication: COVID-19
     Dosage: ?          OTHER FREQUENCY:ONCE;?
     Route: 040
     Dates: start: 20201215, end: 20201215
  7. NORTRIPTYLINE 50 MG DAILY [Concomitant]

REACTIONS (8)
  - Muscular weakness [None]
  - Cerebellar microhaemorrhage [None]
  - Cough [None]
  - Osteoarthritis [None]
  - Seizure [None]
  - Vertebral foraminal stenosis [None]
  - Grip strength decreased [None]
  - Radiculopathy [None]

NARRATIVE: CASE EVENT DATE: 20201220
